FAERS Safety Report 10515109 (Version 2)
Quarter: 2014Q4

REPORT INFORMATION
  Report Type: Spontaneous
  Country: JP (occurrence: JP)
  Receive Date: 20141014
  Receipt Date: 20141014
  Transmission Date: 20150528
  Serious: Yes (Hospitalization, Other)
  Sender: FDA-Public Use
  Company Number: JP-ORION CORPORATION ORION PHARMA-ENT 2014-0151

PATIENT
  Age: 83 Year
  Sex: Female

DRUGS (8)
  1. SELEGILINE [Suspect]
     Active Substance: SELEGILINE
     Route: 048
  2. COMTAN [Suspect]
     Active Substance: ENTACAPONE
     Indication: PARKINSON^S DISEASE
     Route: 048
  3. DEPARO [Suspect]
     Active Substance: BROMOCRIPTINE MESYLATE
     Route: 048
  4. DOPS [Suspect]
     Active Substance: DROXIDOPA
     Route: 048
  5. SYMMETREL [Suspect]
     Active Substance: AMANTADINE HYDROCHLORIDE
     Indication: PARKINSON^S DISEASE
     Route: 048
  6. MAGLAX [Suspect]
     Active Substance: MAGNESIUM OXIDE
     Route: 048
  7. MADOPAR [Suspect]
     Active Substance: BENSERAZIDE HYDROCHLORIDE\LEVODOPA
     Route: 048
  8. YODEL [Suspect]
     Active Substance: SENNA LEAF
     Route: 048

REACTIONS (1)
  - Parkinson^s disease [Unknown]

NARRATIVE: CASE EVENT DATE: 20140829
